FAERS Safety Report 9883832 (Version 1)
Quarter: 2014Q1

REPORT INFORMATION
  Report Type: Spontaneous
  Country: US (occurrence: US)
  Receive Date: 20140210
  Receipt Date: 20140210
  Transmission Date: 20141002
  Serious: No
  Sender: FDA-Public Use
  Company Number: US-BAYER-2014-014316

PATIENT
  Age: 68 Year
  Sex: Female
  Weight: 68 kg

DRUGS (6)
  1. ESTRADIOL HEMIHYDRATE [Suspect]
     Indication: HOT FLUSH
     Dosage: 0.1 MG, OW
     Route: 062
     Dates: start: 20140108
  2. VIVELLE-DOT [Suspect]
     Indication: HOT FLUSH
     Dosage: UNK
     Dates: start: 201307
  3. PROGESTERONE [Concomitant]
     Indication: MENOPAUSE
     Dosage: 100 MG, QD
     Route: 048
     Dates: start: 201307
  4. VITAMIN D [Concomitant]
     Indication: VITAMIN D DEFICIENCY
     Dosage: UNK
     Route: 048
     Dates: start: 201309
  5. B-COMPLEX [VITAMIN B NOS] [Concomitant]
     Dosage: UNK
     Route: 048
     Dates: start: 201401
  6. GLUBORID [Concomitant]
     Indication: DIABETES MELLITUS
     Dosage: 10 MG, QD
     Route: 048
     Dates: start: 1995

REACTIONS (1)
  - Fungal infection [Recovering/Resolving]
